FAERS Safety Report 14166544 (Version 2)
Quarter: 2017Q4

REPORT INFORMATION
  Report Type: Spontaneous
  Country: DE (occurrence: DE)
  Receive Date: 20171107
  Receipt Date: 20171214
  Transmission Date: 20180321
  Serious: Yes (Other)
  Sender: FDA-Public Use
  Company Number: DE-IMPAX LABORATORIES, INC-2017-IPXL-03052

PATIENT
  Age: 2 Week
  Sex: Male

DRUGS (2)
  1. GLYBURIDE. [Suspect]
     Active Substance: GLYBURIDE
     Indication: PRODUCT USE ISSUE
  2. GLYBURIDE. [Suspect]
     Active Substance: GLYBURIDE
     Indication: NEONATAL DIABETES MELLITUS
     Dosage: LOW DOSES (0.0125 MG/KGKG), UNK
     Route: 065

REACTIONS (3)
  - Congenital absence of bile ducts [Unknown]
  - Drug administered to patient of inappropriate age [Unknown]
  - Product use issue [Unknown]
